FAERS Safety Report 8903261 (Version 1)
Quarter: 2012Q4

REPORT INFORMATION
  Report Type: 
  Country: CA (occurrence: CA)
  Receive Date: 20121113
  Receipt Date: 20121113
  Transmission Date: 20130627
  Serious: Yes (Other)
  Sender: FDA-Public Use
  Company Number: CA-ASTRAZENECA-2012SE84571

PATIENT
  Age: 76 Year
  Sex: Female

DRUGS (7)
  1. SYMBICORT TURBUHALER [Suspect]
     Dosage: 2 DOSAGE FORMS, UNKNOWN FREQUENCY
     Route: 055
  2. SALBUTAMOL [Suspect]
     Route: 065
  3. ADVAIR [Suspect]
     Dosage: 2 DOSAGE FORMS
     Route: 055
  4. ANTI-HYPERTENSIVE MEDICATIONS [Concomitant]
  5. HYDROCHLOROTHIAZIDE [Concomitant]
  6. LIPID MODIFYING AGENT [Concomitant]
  7. VALSARTAN [Concomitant]

REACTIONS (4)
  - Asthma [Not Recovered/Not Resolved]
  - Condition aggravated [Not Recovered/Not Resolved]
  - Oral discomfort [Not Recovered/Not Resolved]
  - Candidiasis [Not Recovered/Not Resolved]
